FAERS Safety Report 14246157 (Version 1)
Quarter: 2017Q4

REPORT INFORMATION
  Report Type: Spontaneous
  Country: US (occurrence: None)
  Receive Date: 20171201
  Receipt Date: 20171201
  Transmission Date: 20180321
  Serious: Yes (Hospitalization)
  Sender: FDA-Public Use
  Company Number: None

PATIENT
  Age: 52 Year
  Sex: Male
  Weight: 81.51 kg

DRUGS (1)
  1. NIVOLUMAB [Suspect]
     Active Substance: NIVOLUMAB
     Indication: DIABETES MELLITUS
     Dosage: OTHER
     Route: 042
     Dates: start: 20170517

REACTIONS (3)
  - Diabetic ketoacidosis [None]
  - Anti-insulin antibody increased [None]
  - Type 1 diabetes mellitus [None]

NARRATIVE: CASE EVENT DATE: 20170614
